FAERS Safety Report 5360339-2 (Version None)
Quarter: 2007Q2

REPORT INFORMATION
  Report Type: 
  Country: None (occurrence: None)
  Receive Date: 20070614
  Receipt Date: 20070612
  Transmission Date: 20071010
  Serious: Yes (Other)
  Sender: FDA-Public Use
  Company Number: 014745

PATIENT
  Sex: Female

DRUGS (2)
  1. MEDROXYPROGESTERONE [Suspect]
     Dosage: ORAL
     Route: 048
     Dates: start: 19950101, end: 20030101
  2. ESTRADIOL [Suspect]
     Dosage: ORAL
     Route: 048
     Dates: start: 19950101, end: 20030101

REACTIONS (1)
  - BREAST CANCER FEMALE [None]
